FAERS Safety Report 13869480 (Version 1)
Quarter: 2017Q3

REPORT INFORMATION
  Report Type: Spontaneous
  Country: US (occurrence: US)
  Receive Date: 20170815
  Receipt Date: 20170815
  Transmission Date: 20171127
  Serious: No
  Sender: FDA-Public Use
  Company Number: US-GLAXOSMITHKLINE-US2017GSK124541

PATIENT
  Age: 3 Year
  Sex: Male

DRUGS (2)
  1. LAMOTRIGINE. [Suspect]
     Active Substance: LAMOTRIGINE
     Indication: PRODUCT USED FOR UNKNOWN INDICATION
     Dosage: UNK
  2. LAMICTAL [Suspect]
     Active Substance: LAMOTRIGINE
     Indication: SEIZURE
     Dosage: UNK
     Dates: start: 200709

REACTIONS (3)
  - Decreased immune responsiveness [Not Recovered/Not Resolved]
  - Rash [Not Recovered/Not Resolved]
  - Motion sickness [Not Recovered/Not Resolved]

NARRATIVE: CASE EVENT DATE: 200709
